FAERS Safety Report 20447538 (Version 1)
Quarter: 2022Q1

REPORT INFORMATION
  Report Type: Spontaneous
  Country: US (occurrence: None)
  Receive Date: 20220209
  Receipt Date: 20220209
  Transmission Date: 20220424
  Serious: No
  Sender: FDA-Public Use
  Company Number: US-ROCHE-2936638

PATIENT
  Sex: Male

DRUGS (3)
  1. ROZLYTREK [Suspect]
     Active Substance: ENTRECTINIB
     Indication: Metastases to central nervous system
     Route: 048
     Dates: start: 202101
  2. ROZLYTREK [Suspect]
     Active Substance: ENTRECTINIB
     Indication: Lung neoplasm malignant
  3. ROZLYTREK [Suspect]
     Active Substance: ENTRECTINIB
     Indication: Metastases to bone

REACTIONS (2)
  - Drug ineffective [Unknown]
  - No adverse event [Unknown]
